FAERS Safety Report 13257943 (Version 1)
Quarter: 2017Q1

REPORT INFORMATION
  Report Type: Spontaneous
  Country: JP (occurrence: JP)
  Receive Date: 20170221
  Receipt Date: 20170221
  Transmission Date: 20170428
  Serious: Yes (Death, Hospitalization)
  Sender: FDA-Public Use
  Company Number: JP-SA-2017SA028686

PATIENT
  Age: 67 Year
  Sex: Female
  Weight: 52 kg

DRUGS (2)
  1. BCG FOR IMMUNOTHERAPY [Suspect]
     Active Substance: BACILLUS CALMETTE-GUERIN ANTIGEN, UNSPECIFIED SUBSTRAIN
     Indication: BLADDER CANCER
     Route: 065
  2. BCG FOR IMMUNOTHERAPY [Suspect]
     Active Substance: BACILLUS CALMETTE-GUERIN ANTIGEN, UNSPECIFIED SUBSTRAIN
     Indication: BLADDER CANCER
     Dosage: BLADDER FILLING OF BCG (TOTAL 7 TIMES)?BLADDER FILLING OF BCG (TOTAL 2 TIMES)
     Route: 065

REACTIONS (20)
  - Hydronephrosis [Fatal]
  - Pyelonephritis [Fatal]
  - Jaundice cholestatic [Fatal]
  - Tumour haemorrhage [Fatal]
  - Bladder cancer recurrent [Fatal]
  - Renal haemorrhage [Fatal]
  - Renal impairment [Fatal]
  - Radiation pneumonitis [Fatal]
  - Renal atrophy [Fatal]
  - Ureteral neoplasm [Fatal]
  - Neoplasm progression [Fatal]
  - Metastases to lung [Fatal]
  - Renal neoplasm [Fatal]
  - Urethral neoplasm [Unknown]
  - Stoma site haemorrhage [Fatal]
  - Pyrexia [Fatal]
  - Metastases to liver [Fatal]
  - Haematuria [Fatal]
  - Urine output decreased [Fatal]
  - Bladder irritation [Fatal]

NARRATIVE: CASE EVENT DATE: 200611
